FAERS Safety Report 6181191-1 (Version None)
Quarter: 2009Q2

REPORT INFORMATION
  Report Type: 
  Country: None (occurrence: None)
  Receive Date: 20090506
  Receipt Date: 20090430
  Transmission Date: 20091009
  Serious: Yes (Other)
  Sender: FDA-Public Use
  Company Number: GB-BAYER-200910741BNE

PATIENT
  Age: 72 Year
  Sex: Female

DRUGS (2)
  1. SORAFENIB [Suspect]
     Indication: METASTATIC RENAL CELL CARCINOMA
     Dosage: UNIT DOSE: 400 MG
     Dates: start: 20051101, end: 20060301
  2. SORAFENIB [Suspect]
     Dosage: UNIT DOSE: 200 MG
     Dates: start: 20060301, end: 20090301

REACTIONS (2)
  - BLOOD MAGNESIUM DECREASED [None]
  - DIARRHOEA [None]
